FAERS Safety Report 11032975 (Version 2)
Quarter: 2015Q2

REPORT INFORMATION
  Report Type: Spontaneous
  Country: US (occurrence: US)
  Receive Date: 20150415
  Receipt Date: 20150525
  Transmission Date: 20150821
  Serious: Yes (Other)
  Sender: FDA-Public Use
  Company Number: US-JNJFOC-20141107454

PATIENT
  Age: 75 Year
  Sex: Female

DRUGS (1)
  1. XARELTO [Suspect]
     Active Substance: RIVAROXABAN
     Indication: PRODUCT USED FOR UNKNOWN INDICATION
     Route: 048

REACTIONS (8)
  - Asthenia [Unknown]
  - Myalgia [Unknown]
  - Abdominal pain upper [Unknown]
  - Pain of skin [Unknown]
  - Fatigue [Unknown]
  - Urinary tract infection [Unknown]
  - Acne [Unknown]
  - Drug hypersensitivity [Unknown]
